FAERS Safety Report 5213809-1 (Version None)
Quarter: 2007Q1

REPORT INFORMATION
  Report Type: 
  Country: None (occurrence: None)
  Receive Date: 20070119
  Receipt Date: 20070109
  Transmission Date: 20070707
  Serious: Yes (Hospitalization, Other)
  Sender: FDA-Public Use
  Company Number: US-PFIZER INC-2005133243

PATIENT
  Sex: Female

DRUGS (3)
  1. NEURONTIN [Suspect]
     Indication: NEUROPATHY
     Dates: start: 19960101, end: 20030201
  2. ALCOHOL [Suspect]
     Indication: ILL-DEFINED DISORDER
     Dosage: FREQ:UNKNOWN
     Route: 065
  3. ANTIDEPRESSANTS [Concomitant]

REACTIONS (6)
  - CEREBELLAR ATROPHY [None]
  - DEPRESSION [None]
  - DRUG INEFFECTIVE [None]
  - OVERDOSE [None]
  - SUICIDAL IDEATION [None]
  - SUICIDE ATTEMPT [None]
